FAERS Safety Report 16113079 (Version 1)
Quarter: 2019Q1

REPORT INFORMATION
  Report Type: Spontaneous
  Country: DE (occurrence: DE)
  Receive Date: 20190325
  Receipt Date: 20190325
  Transmission Date: 20190418
  Serious: Yes (Hospitalization, Other)
  Sender: FDA-Public Use
  Company Number: DE-TEVA-2019-DE-1027567

PATIENT
  Sex: Female

DRUGS (5)
  1. METOPROLOL 50 MG [Suspect]
     Active Substance: METOPROLOL
     Indication: HEART RATE INCREASED
  2. BISOPROLOL 2,5 MG [Suspect]
     Active Substance: BISOPROLOL
     Indication: HEART RATE INCREASED
  3. EUTHYROX 75 ?G [Concomitant]
  4. METOPROLOL 50 MG [Suspect]
     Active Substance: METOPROLOL
     Indication: HYPERTENSION
     Route: 065
  5. BISOPROLOL 2,5 MG [Suspect]
     Active Substance: BISOPROLOL
     Indication: HYPERTENSION
     Route: 065

REACTIONS (15)
  - Cystitis noninfective [Not Recovered/Not Resolved]
  - Dizziness [Not Recovered/Not Resolved]
  - Alopecia [Not Recovered/Not Resolved]
  - Somnolence [Not Recovered/Not Resolved]
  - Hyperhidrosis [Not Recovered/Not Resolved]
  - Sleep disorder [Not Recovered/Not Resolved]
  - Back pain [Not Recovered/Not Resolved]
  - Dry eye [Not Recovered/Not Resolved]
  - Conjunctivitis [Not Recovered/Not Resolved]
  - Ileus [Not Recovered/Not Resolved]
  - Muscular weakness [Not Recovered/Not Resolved]
  - Weight increased [Not Recovered/Not Resolved]
  - Constipation [Not Recovered/Not Resolved]
  - Pruritus [Not Recovered/Not Resolved]
  - Gait disturbance [Not Recovered/Not Resolved]
